FAERS Safety Report 6626458-5 (Version None)
Quarter: 2010Q1

REPORT INFORMATION
  Report Type: 
  Country: None (occurrence: None)
  Receive Date: 20100310
  Receipt Date: 20100226
  Transmission Date: 20100710
  Serious: Yes (Other)
  Sender: FDA-Public Use
  Company Number: US-JNJFOC-20100110077

PATIENT
  Age: 69 Year
  Sex: Female
  Weight: 64.41 kg

DRUGS (5)
  1. PEPCID AC [Suspect]
     Indication: GASTROOESOPHAGEAL REFLUX DISEASE
     Route: 048
  2. PEPCID AC [Suspect]
     Route: 048
  3. DIOVAN [Concomitant]
  4. TENEX [Concomitant]
  5. BYSTOLIC [Concomitant]

REACTIONS (2)
  - BLOOD PRESSURE INCREASED [None]
  - DYSPNOEA [None]
